FAERS Safety Report 9078776 (Version 1)
Quarter: 2013Q1

REPORT INFORMATION
  Report Type: Report from Study
  Country: US (occurrence: US)
  Receive Date: 20130130
  Receipt Date: 20130130
  Transmission Date: 20140127
  Serious: No
  Sender: FDA-Public Use
  Company Number: US-ABBOTT-12P-163-0962291-00

PATIENT
  Age: 66 Year
  Sex: Female

DRUGS (6)
  1. HUMIRA 40 MG/0.8 ML PEN [Suspect]
     Indication: CROHN^S DISEASE
     Dates: start: 20120629
  2. FERROUS SULFATE [Concomitant]
     Indication: ANAEMIA
     Dosage: 325MG TWICE DAILY
     Route: 048
  3. COLESTIPOL HYDROCHLORIDE [Concomitant]
     Indication: CROHN^S DISEASE
     Dosage: 1GRAM 2 IN AM AND 2 IN PM DAILY
     Route: 048
  4. LADIES ONE A DAY MULTIVITAMIN [Concomitant]
     Indication: VITAMIN SUPPLEMENTATION
     Dosage: DAILY
     Route: 048
  5. VITAMIN C [Concomitant]
     Indication: VITAMIN SUPPLEMENTATION
     Dosage: TWICE DAILY
     Route: 048
  6. OMEGA 3 FISH OIL [Concomitant]
     Indication: VITAMIN SUPPLEMENTATION
     Dosage: 3 IN AM AND 2 IN PM
     Route: 048

REACTIONS (1)
  - Contusion [Not Recovered/Not Resolved]
